FAERS Safety Report 22005436 (Version 1)
Quarter: 2023Q1

REPORT INFORMATION
  Report Type: Spontaneous
  Country: GB (occurrence: GB)
  Receive Date: 20230217
  Receipt Date: 20230217
  Transmission Date: 20230418
  Serious: Yes (Other)
  Sender: FDA-Public Use
  Company Number: GB-LABORATORIOS LICONSA S.A.-2301GB00467

PATIENT
  Sex: Female

DRUGS (13)
  1. DEXAMETHASONE [Suspect]
     Active Substance: DEXAMETHASONE
     Indication: Product used for unknown indication
     Dosage: 2 MILLIGRAM, WEEKLY
     Route: 065
  2. DEXAMETHASONE [Suspect]
     Active Substance: DEXAMETHASONE
     Indication: Plasma cell myeloma
  3. DEXAMETHASONE [Suspect]
     Active Substance: DEXAMETHASONE
     Indication: Viral infection
  4. OMEPRAZOLE [Suspect]
     Active Substance: OMEPRAZOLE
     Indication: Product used for unknown indication
     Dosage: 20 MILLIGRAM DAILY; 20 MILLIGRAM, DAILY
     Route: 065
  5. ACYCLOVIR [Suspect]
     Active Substance: ACYCLOVIR
     Indication: Product used for unknown indication
     Dosage: 60 MILLIGRAM DAILY; 20 MILLIGRAM, TID
     Route: 065
  6. ACYCLOVIR [Suspect]
     Active Substance: ACYCLOVIR
     Indication: Plasma cell myeloma
  7. ACYCLOVIR [Suspect]
     Active Substance: ACYCLOVIR
     Indication: Viral infection
  8. POMALIDOMIDE [Suspect]
     Active Substance: POMALIDOMIDE
     Indication: Product used for unknown indication
     Dosage: 3 MILLIGRAM DAILY; 3 MILLIGRAM, DAILY
     Route: 065
  9. POMALIDOMIDE [Suspect]
     Active Substance: POMALIDOMIDE
     Indication: Plasma cell myeloma
  10. POMALIDOMIDE [Suspect]
     Active Substance: POMALIDOMIDE
     Indication: Viral infection
  11. AZITHROMYCIN [Concomitant]
     Active Substance: AZITHROMYCIN
     Indication: Product used for unknown indication
     Dosage: 500 MILLIGRAM DAILY; 500 MILLIGRAM, DAILY, ON MON/WED/FRI
  12. COTRIMOXAZOLE [Concomitant]
     Active Substance: SULFAMETHOXAZOLE\TRIMETHOPRIM
     Indication: Product used for unknown indication
     Dosage: 960 MILLIGRAM DAILY; 480 MILLIGRAM, BID, ON MON/WED/FRI
  13. FUROSEMIDE [Concomitant]
     Active Substance: FUROSEMIDE
     Indication: Product used for unknown indication
     Dosage: 20 MILLIGRAM DAILY; 20 MILLIGRAM, QD

REACTIONS (1)
  - Pneumonia [Recovered/Resolved]

NARRATIVE: CASE EVENT DATE: 20230103
